FAERS Safety Report 4530026-9 (Version None)
Quarter: 2004Q4

REPORT INFORMATION
  Report Type: 
  Country: None (occurrence: None)
  Receive Date: 20041214
  Receipt Date: 20041118
  Transmission Date: 20050328
  Serious: Yes (Other)
  Sender: FDA-Public Use
  Company Number: USA-2004-0017976

PATIENT
  Sex: Female

DRUGS (2)
  1. OXYCONTIN [Suspect]
     Indication: CANCER PAIN
  2. LORTAB [Concomitant]

REACTIONS (3)
  - CONFUSIONAL STATE [None]
  - CRYING [None]
  - HEPATITIS C [None]
